FAERS Safety Report 5351968-0 (Version None)
Quarter: 2007Q2

REPORT INFORMATION
  Report Type: 
  Country: None (occurrence: None)
  Receive Date: 20070522
  Receipt Date: 20061106
  Transmission Date: 20071010
  Serious: Yes (Hospitalization, Other)
  Sender: FDA-Public Use
  Company Number: NUBN20050015

PATIENT
  Age: 22 Year
  Sex: Female

DRUGS (4)
  1. NUBAIN [Suspect]
     Dosage: 30 MG DAILY, SUBCUTANEOUS
     Route: 058
     Dates: start: 20041030, end: 20050830
  2. PREGNACARE UNK [Concomitant]
  3. PROCHLORPERAZINE UNK [Concomitant]
  4. LACTULOSE UNK [Concomitant]

REACTIONS (2)
  - DRUG ABUSER [None]
  - DRUG DEPENDENCE [None]
